FAERS Safety Report 22349172 (Version 1)
Quarter: 2023Q2

REPORT INFORMATION
  Report Type: Report from Study
  Country: GB (occurrence: GB)
  Receive Date: 20230522
  Receipt Date: 20230522
  Transmission Date: 20230722
  Serious: Yes (Other)
  Sender: FDA-Public Use
  Company Number: GB-IPSEN Group, Research and Development-2022-06537

PATIENT
  Sex: Male

DRUGS (1)
  1. LANREOTIDE ACETATE [Suspect]
     Active Substance: LANREOTIDE ACETATE
     Indication: Neuroendocrine tumour
     Dosage: 120MG/0.5ML
     Route: 058

REACTIONS (17)
  - Diarrhoea [Recovered/Resolved]
  - Fatigue [Unknown]
  - Lethargy [Unknown]
  - Nausea [Unknown]
  - Chromaturia [Unknown]
  - Jaundice [Recovered/Resolved]
  - Restlessness [Unknown]
  - Nausea [Not Recovered/Not Resolved]
  - Dizziness [Unknown]
  - Diarrhoea [Not Recovered/Not Resolved]
  - Flushing [Not Recovered/Not Resolved]
  - Back pain [Not Recovered/Not Resolved]
  - Hypertension [Unknown]
  - Poor quality sleep [Unknown]
  - Night sweats [Unknown]
  - Hot flush [Unknown]
  - Blood pressure increased [Unknown]
